FAERS Safety Report 9691148 (Version 1)
Quarter: 2013Q4

REPORT INFORMATION
  Report Type: Spontaneous
  Country: JP (occurrence: JP)
  Receive Date: 20131115
  Receipt Date: 20131115
  Transmission Date: 20140711
  Serious: Yes (Death, Other)
  Sender: FDA-Public Use
  Company Number: JP-GLAXOSMITHKLINE-B0941121A

PATIENT
  Age: 74 Year
  Sex: Female

DRUGS (1)
  1. SAMTIREL [Suspect]
     Indication: PNEUMOCYSTIS JIROVECII PNEUMONIA
     Dosage: 750MG TWICE PER DAY
     Route: 048
     Dates: start: 20131023, end: 20131101

REACTIONS (2)
  - Pneumocystis jirovecii pneumonia [Fatal]
  - Condition aggravated [Fatal]
